FAERS Safety Report 14548245 (Version 1)
Quarter: 2018Q1

REPORT INFORMATION
  Report Type: Spontaneous
  Country: US (occurrence: US)
  Receive Date: 20180219
  Receipt Date: 20180219
  Transmission Date: 20180509
  Serious: No
  Sender: FDA-Public Use
  Company Number: US-ROCHE-1880986

PATIENT
  Age: 29 Year
  Sex: Female
  Weight: 57.2 kg

DRUGS (1)
  1. XOLAIR [Suspect]
     Active Substance: OMALIZUMAB
     Indication: CHRONIC SPONTANEOUS URTICARIA
     Route: 058
     Dates: start: 201608

REACTIONS (2)
  - Vulvovaginal candidiasis [Unknown]
  - Alopecia [Unknown]

NARRATIVE: CASE EVENT DATE: 20170116
